FAERS Safety Report 8599441-0 (Version None)
Quarter: 2012Q3

REPORT INFORMATION
  Report Type: 
  Country: None (occurrence: None)
  Receive Date: 20120816
  Receipt Date: 20120814
  Transmission Date: 20120928
  Serious: Yes (Other)
  Sender: FDA-Public Use
  Company Number: US-JNJFOC-20120403871

PATIENT
  Sex: Female

DRUGS (18)
  1. ADRIAMYCIN PFS [Suspect]
     Route: 042
  2. ADRIAMYCIN PFS [Suspect]
     Route: 042
  3. CYCLOPHOSPHAMIDE [Suspect]
     Route: 042
  4. DOXORUBICIN HYDROCHLORIDE [Suspect]
     Route: 042
  5. DOCETAXEL [Suspect]
     Route: 042
  6. DOCETAXEL [Suspect]
     Indication: BREAST CANCER
     Route: 042
  7. NOV-002 [Suspect]
     Indication: BREAST CANCER
     Route: 042
  8. DOXORUBICIN HYDROCHLORIDE [Suspect]
     Indication: BREAST CANCER
     Route: 042
  9. ADRIAMYCIN PFS [Suspect]
     Route: 042
  10. DOXORUBICIN HYDROCHLORIDE [Suspect]
     Route: 042
  11. CYCLOPHOSPHAMIDE [Suspect]
     Route: 042
  12. NOV-002 [Suspect]
     Route: 058
  13. CYCLOPHOSPHAMIDE [Suspect]
     Indication: BREAST CANCER
     Route: 042
  14. ADRIAMYCIN PFS [Suspect]
     Indication: BREAST CANCER
     Route: 042
  15. DOCETAXEL [Suspect]
     Route: 042
  16. DOXORUBICIN HYDROCHLORIDE [Suspect]
     Route: 042
  17. CYCLOPHOSPHAMIDE [Suspect]
     Route: 042
  18. DOCETAXEL [Suspect]
     Route: 042

REACTIONS (1)
  - MUSCULAR WEAKNESS [None]
